FAERS Safety Report 8757844 (Version 1)
Quarter: 2012Q4

REPORT INFORMATION
  Report Type: 
  Country: BR (occurrence: BR)
  Receive Date: 20120828
  Receipt Date: 20120828
  Transmission Date: 20130627
  Serious: Yes (Other)
  Sender: FDA-Public Use
  Company Number: BR-BAYER-2012-085855

PATIENT
  Sex: Female

DRUGS (1)
  1. QLAIRA [Suspect]
     Dosage: UNK
     Route: 048

REACTIONS (2)
  - Menstruation delayed [Not Recovered/Not Resolved]
  - Enterocolitis infectious [None]
